FAERS Safety Report 20931463 (Version 1)
Quarter: 2022Q2

REPORT INFORMATION
  Report Type: Spontaneous
  Country: DK (occurrence: DK)
  Receive Date: 20220608
  Receipt Date: 20220608
  Transmission Date: 20220720
  Serious: Yes (Death)
  Sender: FDA-Public Use
  Company Number: None

PATIENT
  Age: 86 Year
  Sex: Female
  Weight: 55 kg

DRUGS (1)
  1. ALTEPLASE [Suspect]
     Active Substance: ALTEPLASE
     Indication: Cerebral infarction
     Dosage: FORM-POWDER AND SOLVENT FOR SOLUTION FOR INJECTION/INFUSION
     Route: 042
     Dates: start: 20220512

REACTIONS (4)
  - Cerebral haemorrhage [Fatal]
  - Speech disorder [Fatal]
  - Altered state of consciousness [Fatal]
  - Respiratory failure [Fatal]

NARRATIVE: CASE EVENT DATE: 20220512
